FAERS Safety Report 4395282-9 (Version None)
Quarter: 2004Q3

REPORT INFORMATION
  Report Type: 
  Country: None (occurrence: None)
  Receive Date: 20040706
  Receipt Date: 20040617
  Transmission Date: 20050211
  Serious: No
  Sender: FDA-Public Use
  Company Number: 2004AP03250

PATIENT
  Age: 38 Year
  Sex: Female

DRUGS (1)
  1. TAMOXIFEN CITRATE [Suspect]
     Indication: BREAST CANCER

REACTIONS (3)
  - CEREBRAL INFARCTION [None]
  - DIPLOPIA [None]
  - DIZZINESS [None]
